FAERS Safety Report 21273091 (Version 1)
Quarter: 2022Q3

REPORT INFORMATION
  Report Type: Other
  Country: AU (occurrence: AU)
  Receive Date: 20220831
  Receipt Date: 20220831
  Transmission Date: 20221026
  Serious: Yes (Other)
  Sender: FDA-Public Use
  Company Number: AU-DEXPHARM-20221448

PATIENT
  Age: 41 Year
  Sex: Female

DRUGS (2)
  1. OMEPRAZOLE [Suspect]
     Active Substance: OMEPRAZOLE
     Indication: Gastrooesophageal reflux disease
     Dosage: 20 MG ONCE DAILY FOR SEVERAL DAYS PER WEEK OVER THE PREVIOUS MONTH
  2. DINOPROSTONE [Concomitant]
     Active Substance: DINOPROSTONE

REACTIONS (2)
  - Hyponatraemia [Recovered/Resolved]
  - Exposure during pregnancy [Recovered/Resolved]
